FAERS Safety Report 20826033 (Version 1)
Quarter: 2022Q2

REPORT INFORMATION
  Report Type: Spontaneous
  Country: US (occurrence: None)
  Receive Date: 20220512
  Receipt Date: 20220512
  Transmission Date: 20220721
  Serious: Yes (Death)
  Sender: FDA-Public Use
  Company Number: None

PATIENT
  Sex: Female
  Weight: 44.45 kg

DRUGS (8)
  1. CAPECITABINE [Suspect]
     Active Substance: CAPECITABINE
     Indication: Breast cancer female
     Dosage: FREQUENCY : TWICE A DAY;?
     Route: 048
     Dates: start: 2020
  2. CALCIUM [Concomitant]
     Active Substance: CALCIUM
  3. TUKYSA [Concomitant]
     Active Substance: TUCATINIB
  4. CLONAZEPAM [Concomitant]
     Active Substance: CLONAZEPAM
  5. FASLODEX [Concomitant]
     Active Substance: FULVESTRANT
  6. LACTULOSE [Concomitant]
     Active Substance: LACTULOSE
  7. GABAPENTIN [Concomitant]
     Active Substance: GABAPENTIN
  8. ZOFRAN [Concomitant]
     Active Substance: ONDANSETRON HYDROCHLORIDE

REACTIONS (1)
  - Death [None]
